FAERS Safety Report 7396807-1 (Version None)
Quarter: 2011Q1

REPORT INFORMATION
  Report Type: 
  Country: None (occurrence: None)
  Receive Date: 20110328
  Receipt Date: 20110317
  Transmission Date: 20110831
  Serious: Yes (Other)
  Sender: FDA-Public Use
  Company Number: 1000019431

PATIENT
  Age: 69 Year
  Sex: Female

DRUGS (4)
  1. APIDRA (INSULIN GLULISINE) (INSULIN GLULISINE) [Concomitant]
  2. NEBIVOLOL HCL [Suspect]
     Dosage: 5 MG (5 MG, 1 IN 1 D) ,ORAL
     Route: 048
     Dates: start: 20070101
  3. JANUVIA (SITAGLIPTIN  PHOSPHATE) (SITAGLIPTIN PHOSPHATE) [Concomitant]
  4. LANTUS [Suspect]

REACTIONS (4)
  - CHEST PAIN [None]
  - ELECTROCARDIOGRAM REPOLARISATION ABNORMALITY [None]
  - DYSPNOEA [None]
  - BLOOD PRESSURE SYSTOLIC INCREASED [None]
